FAERS Safety Report 5298875-X (Version None)
Quarter: 2007Q2

REPORT INFORMATION
  Report Type: 
  Country: None (occurrence: None)
  Receive Date: 20070417
  Receipt Date: 20061128
  Transmission Date: 20071010
  Serious: Yes (Hospitalization)
  Sender: FDA-Public Use
  Company Number: US-BAYER-200512598BWH

PATIENT
  Age: 67 Year
  Sex: Male
  Weight: 88 kg

DRUGS (22)
  1. SORAFENIB [Suspect]
     Indication: METASTATIC MALIGNANT MELANOMA
     Dosage: TOTAL DAILY DOSE: 400 MG  UNIT DOSE: 200 MG
     Route: 048
     Dates: start: 20051102, end: 20051111
  2. SORAFENIB [Suspect]
     Dosage: TOTAL DAILY DOSE: 800 MG  UNIT DOSE: 200 MG
     Route: 048
     Dates: start: 20051114, end: 20060607
  3. SORAFENIB [Suspect]
     Route: 048
  4. DTIC-DOME [Suspect]
     Route: 042
     Dates: start: 20060607, end: 20060607
  5. DTIC-DOME [Suspect]
     Route: 042
     Dates: start: 20051102, end: 20051102
  6. COUMADIN [Concomitant]
     Indication: ATRIAL FIBRILLATION
     Dosage: TOTAL DAILY DOSE: 7.5 MG
     Dates: start: 20000101, end: 20051111
  7. LISINOPRIL [Concomitant]
     Indication: HYPERTENSION
     Route: 048
     Dates: start: 20000101
  8. VERAPAMIL [Concomitant]
     Indication: HYPERTENSION
     Route: 048
     Dates: start: 20000101
  9. HYDROCHLOROTHIAZIDE [Concomitant]
     Indication: DIURETIC THERAPY
     Route: 048
     Dates: start: 20000101, end: 20051114
  10. ATENOLOL [Concomitant]
     Indication: HYPERTENSION
     Route: 048
     Dates: start: 20000101
  11. PRAVACHOL [Concomitant]
     Indication: HYPERLIPIDAEMIA
     Route: 048
     Dates: start: 20000101
  12. OXYCODONE HCL [Concomitant]
     Indication: PAIN
     Dosage: AS USED: 10 MG  UNIT DOSE: 5 MG
     Route: 048
     Dates: start: 20051102
  13. OXYCONTIN [Concomitant]
     Indication: PAIN
     Dosage: TOTAL DAILY DOSE: 20 MG
     Route: 048
     Dates: start: 20051102
  14. SENOKOT [Concomitant]
     Indication: CONSTIPATION
     Route: 048
     Dates: start: 20051108
  15. ALLOPURINOL [Concomitant]
     Indication: GOUT
     Route: 048
     Dates: start: 20051113
  16. ALLOPURINOL [Concomitant]
     Route: 048
     Dates: start: 20010101
  17. PERCOCET [Concomitant]
     Indication: PAIN
     Route: 048
     Dates: start: 20051012
  18. TYLENOL [Concomitant]
     Indication: PAIN
     Route: 048
     Dates: start: 19800101
  19. HYDROCHLOROTHIAZIDE [Concomitant]
     Indication: HYPERTENSION
     Route: 048
     Dates: start: 20000101
  20. CELEBREX [Concomitant]
     Indication: DRUG USE FOR UNKNOWN INDICATION
     Route: 048
     Dates: start: 20030101
  21. ZOFRAN [Concomitant]
  22. COMPAZINE [Concomitant]

REACTIONS (2)
  - HYPOTENSION [None]
  - TUMOUR HAEMORRHAGE [None]
